FAERS Safety Report 8103876-X (Version None)
Quarter: 2012Q1

REPORT INFORMATION
  Report Type: 
  Country: None (occurrence: None)
  Receive Date: 20120201
  Receipt Date: 20120126
  Transmission Date: 20120608
  Serious: Yes (Other)
  Sender: FDA-Public Use
  Company Number: US-PFIZER INC-2012022482

PATIENT
  Sex: Female
  Weight: 113 kg

DRUGS (2)
  1. LYRICA [Suspect]
     Indication: NEUROPATHY PERIPHERAL
     Dosage: 50 MG, 1X/DAY
     Route: 048
  2. LORTAB [Concomitant]
     Dosage: UNK

REACTIONS (10)
  - SKIN DISCOLOURATION [None]
  - PAIN IN EXTREMITY [None]
  - LOWER LIMB FRACTURE [None]
  - ARTHROPATHY [None]
  - FALL [None]
  - HALLUCINATION [None]
  - SOMNOLENCE [None]
  - FEAR OF DEATH [None]
  - NEUROPATHY PERIPHERAL [None]
  - ABNORMAL DREAMS [None]
